FAERS Safety Report 24062426 (Version 1)
Quarter: 2024Q3

REPORT INFORMATION
  Report Type: Spontaneous
  Country: CA (occurrence: CA)
  Receive Date: 20240708
  Receipt Date: 20240708
  Transmission Date: 20241016
  Serious: Yes (Other)
  Sender: TEVA
  Company Number: CA-TEVA-VS-3215072

PATIENT
  Age: 34 Year
  Sex: Female

DRUGS (2)
  1. QUETIAPINE FUMARATE [Suspect]
     Active Substance: QUETIAPINE FUMARATE
     Indication: Insomnia
     Route: 048
  2. ABRILADA [Suspect]
     Active Substance: ADALIMUMAB-AFZB
     Indication: Crohn^s disease
     Dosage: ABRILADA SINGLE-DOSE VIAL
     Route: 058

REACTIONS (9)
  - Abdominal pain [Unknown]
  - Perinatal depression [Unknown]
  - Product use issue [Unknown]
  - Off label use [Unknown]
  - Nausea [Unknown]
  - Mental disorder [Unknown]
  - Insomnia [Unknown]
  - Drug ineffective [Unknown]
  - Constipation [Unknown]
